FAERS Safety Report 21749518 (Version 1)
Quarter: 2022Q4

REPORT INFORMATION
  Report Type: Spontaneous
  Country: US (occurrence: None)
  Receive Date: 20221217
  Receipt Date: 20221217
  Transmission Date: 20230113
  Serious: No
  Sender: FDA-Public Use
  Company Number: None

PATIENT
  Sex: Male

DRUGS (3)
  1. HUMIRA [Suspect]
     Active Substance: ADALIMUMAB
     Indication: Inflammatory bowel disease
     Dosage: FREQUENCY : EVERY OTHER WEEK;?
     Route: 058
     Dates: start: 20220715
  2. MAGNESIUM [Concomitant]
     Active Substance: MAGNESIUM
  3. Ultrinflamex 360 [Concomitant]

REACTIONS (4)
  - Abdominal pain [None]
  - Haemorrhage [None]
  - Abdominal distension [None]
  - Flatulence [None]
